FAERS Safety Report 4687268-1 (Version None)
Quarter: 2005Q2

REPORT INFORMATION
  Report Type: 
  Country: None (occurrence: None)
  Receive Date: 20050608
  Receipt Date: 20050526
  Transmission Date: 20051028
  Serious: Yes (Other)
  Sender: FDA-Public Use
  Company Number: 2005081588

PATIENT
  Sex: Male
  Weight: 76.2043 kg

DRUGS (6)
  1. VIAGRA [Suspect]
     Indication: POST-TRAUMATIC STRESS DISORDER
     Dosage: (100 MG), ORAL
     Route: 048
  2. SERZONE [Concomitant]
  3. LORAZEPAM [Concomitant]
  4. NIZATIDINE [Concomitant]
  5. ACIPHEX [Concomitant]
  6. IBUPROFEN [Concomitant]

REACTIONS (10)
  - ARTERIAL OCCLUSIVE DISEASE [None]
  - BODY HEIGHT DECREASED [None]
  - BONE PAIN [None]
  - CARDIAC STRESS TEST ABNORMAL [None]
  - CHEST PAIN [None]
  - COUGH [None]
  - DRUG EFFECT DECREASED [None]
  - ELECTROCARDIOGRAM ABNORMAL [None]
  - NASOPHARYNGITIS [None]
  - POLLAKIURIA [None]
